FAERS Safety Report 4800716-9 (Version None)
Quarter: 2005Q4

REPORT INFORMATION
  Report Type: 
  Country: None (occurrence: None)
  Receive Date: 20051013
  Receipt Date: 20050927
  Transmission Date: 20060501
  Serious: Yes (Hospitalization)
  Sender: FDA-Public Use
  Company Number: 2005PL000077

PATIENT
  Age: 43 Year
  Sex: Female
  Weight: 53 kg

DRUGS (9)
  1. ALLOPURINOL [Suspect]
     Indication: HYPERURICAEMIA
     Dosage: SEE IMAGE, PO
     Route: 048
     Dates: start: 20020124, end: 20020126
  2. ALLOPURINOL [Suspect]
     Indication: HYPERURICAEMIA
     Dosage: SEE IMAGE, PO
     Route: 048
     Dates: start: 20020127, end: 20020212
  3. PREDNISOLONE [Concomitant]
  4. HYDROTALCITE [Concomitant]
  5. VITAMIN B COMPLEX CAP [Concomitant]
  6. ASCORBIC ACID [Concomitant]
  7. CALCIUM CARBONATE [Concomitant]
  8. AMLODIPINE [Concomitant]
  9. FOSINOPRIL SODIUM [Concomitant]

REACTIONS (23)
  - ANAEMIA [None]
  - APLASIA PURE RED CELL [None]
  - CATHETER RELATED INFECTION [None]
  - DRUG ERUPTION [None]
  - DRUG HYPERSENSITIVITY [None]
  - EOSINOPHILIA [None]
  - ESCHERICHIA URINARY TRACT INFECTION [None]
  - EXFOLIATIVE RASH [None]
  - GASTRITIS EROSIVE [None]
  - GASTRITIS HAEMORRHAGIC [None]
  - HEPATIC ENZYME ABNORMAL [None]
  - HEPATIC FUNCTION ABNORMAL [None]
  - LEUKOCYTOSIS [None]
  - LUNG INFILTRATION [None]
  - LYMPHADENOPATHY [None]
  - MICROCYTOSIS [None]
  - PATHOGEN RESISTANCE [None]
  - PNEUMONITIS CRYPTOCOCCAL [None]
  - RENAL FUNCTION TEST ABNORMAL [None]
  - SERUM FERRITIN INCREASED [None]
  - STAPHYLOCOCCAL SEPSIS [None]
  - TACHYCARDIA [None]
  - VAGINAL BURNING SENSATION [None]
